FAERS Safety Report 4303602-6 (Version None)
Quarter: 2004Q1

REPORT INFORMATION
  Report Type: 
  Country: None (occurrence: None)
  Receive Date: 20040223
  Receipt Date: 20040212
  Transmission Date: 20041129
  Serious: Yes (Hospitalization)
  Sender: FDA-Public Use
  Company Number: 2004-02-1015

PATIENT
  Age: 32 Year
  Sex: Female

DRUGS (3)
  1. PERPHENAZINE [Suspect]
     Indication: POSTPARTUM DEPRESSION
  2. CITALOPRAM [Suspect]
     Indication: POSTPARTUM DEPRESSION
  3. AMOXAPINE [Suspect]
     Indication: POSTPARTUM DEPRESSION

REACTIONS (6)
  - ACUTE FEBRILE NEUTROPHILIC DERMATOSIS [None]
  - ACUTE RESPIRATORY DISTRESS SYNDROME [None]
  - BACTERIAL INFECTION [None]
  - ENTEROBACTER INFECTION [None]
  - HYPOTENSION [None]
  - PNEUMONIA [None]
